FAERS Safety Report 9123712 (Version 2)
Quarter: 2013Q2

REPORT INFORMATION
  Report Type: Spontaneous
  Country: HU (occurrence: HU)
  Receive Date: 20130115
  Receipt Date: 20130412
  Transmission Date: 20140414
  Serious: Yes (Other)
  Sender: FDA-Public Use
  Company Number: HU-PFIZER INC-2013011510

PATIENT
  Age: 70 Year
  Sex: Female
  Weight: 80 kg

DRUGS (5)
  1. XALATAN [Suspect]
     Indication: GLAUCOMA
     Dosage: 1 X1 DROP/EYE/DAY
     Route: 047
     Dates: start: 2009, end: 2009
  2. NEBIVOLOL SANDOZ [Concomitant]
     Dosage: 5 MG, STARTED 3-4 YEARS AGO
  3. NOOTROPIL [Concomitant]
     Dosage: 1200 MG, UNK
     Dates: start: 1985
  4. BETASERC [Concomitant]
     Dosage: 24 MG, UNK
     Dates: start: 1985
  5. ASPIRIN PROTECT [Concomitant]
     Dosage: UNK
     Dates: start: 1985

REACTIONS (2)
  - Visual impairment [Recovered/Resolved]
  - Laboratory test abnormal [Recovered/Resolved]
